FAERS Safety Report 23383047 (Version 1)
Quarter: 2024Q1

REPORT INFORMATION
  Report Type: Spontaneous
  Country: US (occurrence: None)
  Receive Date: 20240108
  Receipt Date: 20240108
  Transmission Date: 20240409
  Serious: Yes (Disabling)
  Sender: FDA-Public Use
  Company Number: None

PATIENT
  Age: 50 Year
  Sex: Female
  Weight: 72.45 kg

DRUGS (17)
  1. TIZANIDINE [Suspect]
     Active Substance: TIZANIDINE
     Indication: Muscle spasms
     Dosage: 1 TABLET 3 TIMES A DAY ORAL ?
     Route: 048
     Dates: start: 20240105, end: 20240106
  2. TIZANIDINE [Suspect]
     Active Substance: TIZANIDINE
     Indication: Neuralgia
  3. DEVICE [Concomitant]
     Active Substance: DEVICE
  4. METOPROLOL [Concomitant]
     Active Substance: METOPROLOL
  5. PROZOSIN [Concomitant]
  6. Hydrolyzed [Concomitant]
  7. TYLENOL [Concomitant]
     Active Substance: ACETAMINOPHEN
  8. ADVIL [Concomitant]
     Active Substance: IBUPROFEN
  9. Excedrine [Concomitant]
  10. TORSEMIDE [Concomitant]
     Active Substance: TORSEMIDE
  11. POTASSIUM [Concomitant]
     Active Substance: POTASSIUM
  12. CYANOCOBALAMIN\DEXPANTHENOL\NIACINAMIDE\PYRIDOXINE HYDROCHLORIDE\RIBOF [Concomitant]
     Active Substance: CYANOCOBALAMIN\DEXPANTHENOL\NIACINAMIDE\PYRIDOXINE HYDROCHLORIDE\RIBOFLAVIN 5^-PHOSPHATE SODIUM\THIA
  13. D [Concomitant]
  14. DIETARY SUPPLEMENT [Concomitant]
     Active Substance: DIETARY SUPPLEMENT
  15. HERBALS\WITHANIA SOMNIFERA ROOT [Concomitant]
     Active Substance: HERBALS\WITHANIA SOMNIFERA ROOT
  16. MULTI [Concomitant]
  17. Osteo-Bi Flex [Concomitant]

REACTIONS (25)
  - Disturbance in attention [None]
  - Nausea [None]
  - Headache [None]
  - Restlessness [None]
  - Palpitations [None]
  - Fatigue [None]
  - Somnolence [None]
  - Dizziness [None]
  - Dizziness [None]
  - Dizziness [None]
  - Feeling drunk [None]
  - Loss of consciousness [None]
  - Limb discomfort [None]
  - Burning sensation [None]
  - Ear discomfort [None]
  - Throat irritation [None]
  - Pain [None]
  - Chills [None]
  - Feeling abnormal [None]
  - Muscle spasms [None]
  - Hypoaesthesia [None]
  - Skin burning sensation [None]
  - Pain [None]
  - Loss of personal independence in daily activities [None]
  - Blood glucose abnormal [None]

NARRATIVE: CASE EVENT DATE: 20240106
